FAERS Safety Report 23940926 (Version 2)
Quarter: 2024Q3

REPORT INFORMATION
  Report Type: Spontaneous
  Country: US (occurrence: None)
  Receive Date: 20240605
  Receipt Date: 20240705
  Transmission Date: 20241016
  Serious: Yes (Other)
  Sender: ASTRAZENECA
  Company Number: 2024A125294

PATIENT
  Age: 875 Month
  Sex: Male

DRUGS (1)
  1. FARXIGA [Suspect]
     Active Substance: DAPAGLIFLOZIN PROPANEDIOL
     Indication: Microalbuminuria
     Route: 048
     Dates: start: 20240522, end: 20240528

REACTIONS (6)
  - Cough [Unknown]
  - Pulmonary congestion [Unknown]
  - Rhinorrhoea [Unknown]
  - Feeling cold [Unknown]
  - Head discomfort [Recovering/Resolving]
  - Chest discomfort [Recovering/Resolving]

NARRATIVE: CASE EVENT DATE: 20240501
